FAERS Safety Report 11072456 (Version 1)
Quarter: 2015Q2

REPORT INFORMATION
  Report Type: Spontaneous
  Country: US (occurrence: None)
  Receive Date: 20150427
  Receipt Date: 20150427
  Transmission Date: 20150821
  Serious: Yes (Hospitalization, Disabling, Other)
  Sender: FDA-Public Use
  Company Number: None

PATIENT
  Age: 20 Year
  Sex: Male
  Weight: 58.97 kg

DRUGS (1)
  1. PERMETHRIN. [Suspect]
     Active Substance: PERMETHRIN
     Indication: PRURITUS
     Route: 061
     Dates: start: 20140904, end: 20140906

REACTIONS (13)
  - Application site discolouration [None]
  - Application site odour [None]
  - Lymphadenopathy [None]
  - Alopecia [None]
  - Hair disorder [None]
  - Incorrect drug administration duration [None]
  - Feeling abnormal [None]
  - Pain [None]
  - Eye pain [None]
  - Melanocytic naevus [None]
  - Hair texture abnormal [None]
  - Skin atrophy [None]
  - Application site pain [None]

NARRATIVE: CASE EVENT DATE: 20140904
